FAERS Safety Report 10652057 (Version 6)
Quarter: 2016Q4

REPORT INFORMATION
  Report Type: Spontaneous
  Country: US (occurrence: US)
  Receive Date: 20141215
  Receipt Date: 20161221
  Transmission Date: 20170206
  Serious: Yes (Other)
  Sender: FDA-Public Use
  Company Number: US-PFIZER INC-2014342482

PATIENT
  Age: 80 Year
  Sex: Female
  Weight: 95 kg

DRUGS (15)
  1. FUROSEMIDE. [Concomitant]
     Active Substance: FUROSEMIDE
     Dosage: 20 MG, 2X/DAY (1 TABLET EVERY 12 HOURS)
     Route: 048
  2. DETROL LA [Concomitant]
     Active Substance: TOLTERODINE TARTRATE
     Dosage: 4 MG, DAILY (QD)
     Route: 048
     Dates: start: 20140325
  3. NORCO [Concomitant]
     Active Substance: ACETAMINOPHEN\HYDROCODONE BITARTRATE
     Dosage: 1 DF, AS NEEDED [ACETAMINOPHEN 325 MG-HYDROCODONE 10MG] 1 PO Q4-6HRS
     Route: 048
     Dates: start: 20140219
  4. LYRICA [Suspect]
     Active Substance: PREGABALIN
     Indication: NEURALGIA
     Dosage: 50 MG, DAILY (QD)
     Route: 048
     Dates: start: 20140617
  5. LYRICA [Suspect]
     Active Substance: PREGABALIN
     Dosage: 75 MG, 3X/DAY
     Route: 048
  6. OXYBUTYNIN CHLORIDE. [Concomitant]
     Active Substance: OXYBUTYNIN CHLORIDE
     Dosage: 5 MG, 2X/DAY
     Route: 048
     Dates: start: 20140326
  7. LYRICA [Suspect]
     Active Substance: PREGABALIN
     Dosage: 75 MG, 3X/DAY
     Dates: start: 20150430
  8. TRIAMCINOLONE ACETONIDE. [Concomitant]
     Active Substance: TRIAMCINOLONE ACETONIDE
     Dosage: UNK , 2X/DAY (APPLY TO AFFECTED AREA UNDER BREAST)
     Route: 061
  9. AMLODIPINE BESYLATE. [Concomitant]
     Active Substance: AMLODIPINE BESYLATE
     Dosage: 10 MG, 1 TABLET BY MOUTH ONE TIME
     Route: 048
  10. LYRICA [Suspect]
     Active Substance: PREGABALIN
     Indication: HERPES ZOSTER
     Dosage: 75 MG, 2X/DAY (ONE IN MORNING AND ONE AT NIGHT)
  11. LYRICA [Suspect]
     Active Substance: PREGABALIN
     Indication: POST HERPETIC NEURALGIA
     Dosage: 75 MG, DAILY (QD)
     Route: 048
     Dates: start: 20141208
  12. NORCO [Concomitant]
     Active Substance: ACETAMINOPHEN\HYDROCODONE BITARTRATE
     Dosage: UNK [ACETAMINOPHEN 325 MG-HYDROCODONE 7.5 MG]
     Route: 048
     Dates: start: 20140617
  13. AZITHROMYCIN ANHYDROUS. [Concomitant]
     Active Substance: AZITHROMYCIN ANHYDROUS
     Dosage: 250 MG, UNK (TAKE AS DIRECTED; 5 DAY DOSE PACK)
     Dates: start: 20140617
  14. XARELTO [Concomitant]
     Active Substance: RIVAROXABAN
     Dosage: 20 MG, DAILY (WITH FOOD)
     Route: 048
  15. SALIVA SUBSTITUTE, OASIS MOISTURISZING MOUTH [Concomitant]
     Indication: DRY MOUTH
     Dosage: 1 DF, AS NEEDED (EVERY 4 HRS)
     Route: 048
     Dates: start: 20140325

REACTIONS (5)
  - Chronic obstructive pulmonary disease [Recovered/Resolved]
  - Drug hypersensitivity [Recovered/Resolved]
  - Speech disorder [Recovered/Resolved]
  - Nasal congestion [Recovered/Resolved]
  - Dyspnoea [Recovered/Resolved]
